FAERS Safety Report 4641603-9 (Version None)
Quarter: 2005Q2

REPORT INFORMATION
  Report Type: 
  Country: None (occurrence: None)
  Receive Date: 20050420
  Receipt Date: 20050408
  Transmission Date: 20051028
  Serious: Yes (Disabling)
  Sender: FDA-Public Use
  Company Number: 05P-163-0290876-00

PATIENT
  Sex: Female
  Weight: 104.5 kg

DRUGS (5)
  1. DEPAKOTE [Suspect]
     Indication: MANIA
     Dosage: 1750 MG, 1 IN 1 D; PER ORAL
     Route: 048
     Dates: start: 20010701
  2. LORAZEPAM [Concomitant]
  3. QUETIAPINE [Concomitant]
  4. IBUPROFEN [Concomitant]
  5. LEVOTHYROXINE SODIUM [Concomitant]

REACTIONS (5)
  - ABASIA [None]
  - ARTHRALGIA [None]
  - BLOOD CORTISOL DECREASED [None]
  - OEDEMA PERIPHERAL [None]
  - STRESS [None]
